FAERS Safety Report 4765398-3 (Version None)
Quarter: 2005Q3

REPORT INFORMATION
  Report Type: 
  Country: None (occurrence: None)
  Receive Date: 20050908
  Receipt Date: 20050908
  Transmission Date: 20060218
  Serious: Yes (Hospitalization)
  Sender: FDA-Public Use
  Company Number: None

PATIENT
  Age: 90 Year
  Sex: Male
  Weight: 52.9 kg

DRUGS (2)
  1. ERTAPENEM [Suspect]
     Indication: KLEBSIELLA INFECTION
     Dosage: 1 G  IV  Q24HRS
     Route: 042
     Dates: start: 20050705, end: 20050719
  2. ERTAPENEM [Suspect]
     Indication: URINARY TRACT INFECTION
     Dosage: 1 G  IV  Q24HRS
     Route: 042
     Dates: start: 20050705, end: 20050719

REACTIONS (1)
  - MYOCLONIC EPILEPSY [None]
